FAERS Safety Report 14035240 (Version 3)
Quarter: 2022Q2

REPORT INFORMATION
  Report Type: Spontaneous
  Country: IT (occurrence: IT)
  Receive Date: 20171003
  Receipt Date: 20220620
  Transmission Date: 20220721
  Serious: Yes (Life-Threatening)
  Sender: FDA-Public Use
  Company Number: None

PATIENT
  Age: 39 Year
  Sex: Female

DRUGS (5)
  1. MORPHINE SULFATE [Suspect]
     Active Substance: MORPHINE SULFATE
     Indication: Intentional self-injury
     Dosage: 1 DOSAGE FORM, SINGLE
     Route: 048
     Dates: start: 20170612, end: 20170612
  2. SODIUM OXYBATE [Suspect]
     Active Substance: SODIUM OXYBATE
     Indication: Intentional self-injury
     Dosage: 2 DOSAGE FORM, SINGLE
     Route: 048
     Dates: start: 20170612, end: 20170612
  3. RIVOTRIL [Suspect]
     Active Substance: CLONAZEPAM
     Indication: Intentional self-injury
     Dosage: 1 DOSAGE FORM, SINGLE
     Route: 048
     Dates: start: 20170612, end: 20170612
  4. PAROXETINE HYDROCHLORIDE [Suspect]
     Active Substance: PAROXETINE HYDROCHLORIDE
     Indication: Intentional self-injury
     Dosage: 1 DOSAGE FORM, SINGLE
     Route: 048
     Dates: start: 20170612, end: 20170612
  5. ANTABUSE [Suspect]
     Active Substance: DISULFIRAM
     Indication: Intentional self-injury
     Dosage: 1 DOSAGE FORM, SINGLE
     Route: 048
     Dates: start: 20170612, end: 20170612

REACTIONS (5)
  - Coma [Unknown]
  - Intentional self-injury [Unknown]
  - Toxicologic test abnormal [Unknown]
  - Coma scale abnormal [Unknown]
  - Drug abuse [Unknown]

NARRATIVE: CASE EVENT DATE: 20170612
